FAERS Safety Report 7657027-6 (Version None)
Quarter: 2011Q3

REPORT INFORMATION
  Report Type: 
  Country: None (occurrence: None)
  Receive Date: 20110804
  Receipt Date: 20110729
  Transmission Date: 20111222
  Serious: Yes (Other)
  Sender: FDA-Public Use
  Company Number: BR-BAYER-2011-067591

PATIENT
  Age: 32 Year
  Sex: Female

DRUGS (1)
  1. ULTRAVIST 150 [Suspect]
     Indication: COMPUTERISED TOMOGRAM
     Dosage: UNK UNK, ONCE
     Route: 042
     Dates: start: 20110729, end: 20110729

REACTIONS (4)
  - DYSPNOEA [None]
  - THROAT IRRITATION [None]
  - TONGUE PRURITUS [None]
  - RASH [None]
